FAERS Safety Report 10303441 (Version 8)
Quarter: 2021Q4

REPORT INFORMATION
  Report Type: Spontaneous
  Country: FR (occurrence: FR)
  Receive Date: 20140714
  Receipt Date: 20211231
  Transmission Date: 20220303
  Serious: Yes (Death, Other)
  Sender: FDA-Public Use
  Company Number: FR-AFSSAPS-LM20140489

PATIENT
  Age: 56 Year
  Sex: Male
  Weight: 135 kg

DRUGS (12)
  1. PRADAXA [Suspect]
     Active Substance: DABIGATRAN ETEXILATE MESYLATE
     Indication: Atrial fibrillation
     Route: 048
     Dates: start: 20121005, end: 20140511
  2. KARDEGIC [Suspect]
     Active Substance: ASPIRIN DL-LYSINE
     Indication: Ischaemic cardiomyopathy
     Route: 048
     Dates: start: 20121005, end: 20140511
  3. CORDARONE [Suspect]
     Active Substance: AMIODARONE HYDROCHLORIDE
     Indication: Atrial fibrillation
     Route: 048
     Dates: start: 20130114, end: 20140511
  4. EZETIMIBE\SIMVASTATIN [Concomitant]
     Active Substance: EZETIMIBE\SIMVASTATIN
     Indication: Product used for unknown indication
     Dosage: 0-0-1
  5. METFORMIN [Concomitant]
     Active Substance: METFORMIN HYDROCHLORIDE
     Indication: Product used for unknown indication
     Dosage: 1-1-1
  6. FUROSEMIDE [Concomitant]
     Active Substance: FUROSEMIDE
     Indication: Product used for unknown indication
     Dosage: 1-1-0
  7. IVABRADINE [Concomitant]
     Active Substance: IVABRADINE
     Indication: Product used for unknown indication
     Dosage: 1-0-1
  8. EXFORGE [Concomitant]
     Active Substance: AMLODIPINE BESYLATE\VALSARTAN
     Indication: Product used for unknown indication
     Dosage: 1-0-1
     Dates: start: 20121005
  9. SERETIDE [Concomitant]
     Active Substance: FLUTICASONE PROPIONATE\SALMETEROL XINAFOATE
     Indication: Product used for unknown indication
     Dosage: 1-0-1
  10. BISOPROLOL [Concomitant]
     Active Substance: BISOPROLOL
     Indication: Product used for unknown indication
     Dosage: 1-0-0
  11. PANTOPRAZOLE [Concomitant]
     Active Substance: PANTOPRAZOLE
     Indication: Product used for unknown indication
     Dosage: 0-0-1
  12. LORAZEPAM [Concomitant]
     Active Substance: LORAZEPAM
     Indication: Product used for unknown indication
     Dosage: 0-0-1

REACTIONS (5)
  - Small intestinal haemorrhage [Fatal]
  - Multiple organ dysfunction syndrome [Fatal]
  - Cardiogenic shock [Fatal]
  - Fatigue [Unknown]
  - Anal haemorrhage [Recovered/Resolved]

NARRATIVE: CASE EVENT DATE: 20131122
